FAERS Safety Report 15203204 (Version 2)
Quarter: 2018Q3

REPORT INFORMATION
  Report Type: Spontaneous
  Country: DE (occurrence: DE)
  Receive Date: 20180726
  Receipt Date: 20180827
  Transmission Date: 20181010
  Serious: Yes (Other)
  Sender: FDA-Public Use
  Company Number: DE-PFIZER INC-2018294603

PATIENT
  Age: 18 Year
  Sex: Male
  Weight: 63.6 kg

DRUGS (3)
  1. L?THYROXINE [LEVOTHYROXINE] [Concomitant]
     Indication: HYPOPITUITARISM
     Dosage: UNK
  2. HYDROCORTISONE. [Concomitant]
     Active Substance: HYDROCORTISONE
     Indication: HYPOPITUITARISM
     Dosage: 10 MG, 5 MG?5MG
  3. GENOTROPIN [Suspect]
     Active Substance: SOMATROPIN
     Indication: HYPOPITUITARISM
     Dosage: 0.5 MG, 1X/DAY
     Route: 058
     Dates: start: 2002

REACTIONS (3)
  - Bone cyst [Recovered/Resolved]
  - Bone fissure [Recovered/Resolved]
  - Enchondromatosis [Recovered/Resolved]

NARRATIVE: CASE EVENT DATE: 20180723
